FAERS Safety Report 25616480 (Version 1)
Quarter: 2025Q3

REPORT INFORMATION
  Report Type: Spontaneous
  Country: US (occurrence: US)
  Receive Date: 20250729
  Receipt Date: 20250729
  Transmission Date: 20251020
  Serious: Yes (Hospitalization, Other)
  Sender: BAXTER
  Company Number: US-BAXTER-2025BAX018842

PATIENT
  Age: 61 Year
  Sex: Male
  Weight: 105.7 kg

DRUGS (17)
  1. FUROSEMIDE [Suspect]
     Active Substance: FUROSEMIDE
     Indication: Pulmonary oedema
     Route: 042
  2. FUROSEMIDE [Suspect]
     Active Substance: FUROSEMIDE
     Route: 042
  3. LABETALOL [Concomitant]
     Active Substance: LABETALOL
     Indication: Product used for unknown indication
     Route: 065
  4. VANCOMYCIN [Concomitant]
     Active Substance: VANCOMYCIN
     Indication: Bacteraemia
  5. MEROPENEM [Concomitant]
     Active Substance: MEROPENEM
     Indication: Bacteraemia
  6. NOREPINEPHRINE [Concomitant]
     Active Substance: NOREPINEPHRINE
     Indication: Product used for unknown indication
     Route: 042
  7. VASOPRESSIN [Concomitant]
     Active Substance: VASOPRESSIN
     Indication: Product used for unknown indication
     Route: 042
  8. PROPOFOL [Concomitant]
     Active Substance: PROPOFOL
     Indication: Product used for unknown indication
     Route: 042
  9. FENTANYL [Concomitant]
     Active Substance: FENTANYL
     Indication: Product used for unknown indication
     Route: 042
  10. HYDROCORTISONE [Concomitant]
     Active Substance: HYDROCORTISONE
     Indication: Adrenocortical steroid therapy
     Route: 042
  11. PIPERACILLIN AND TAZOBACTAM [Concomitant]
     Active Substance: PIPERACILLIN SODIUM\TAZOBACTAM SODIUM
     Route: 042
  12. IVERMECTIN [Concomitant]
     Active Substance: IVERMECTIN
     Indication: Disseminated strongyloidiasis
     Route: 058
  13. IVERMECTIN [Concomitant]
     Active Substance: IVERMECTIN
     Route: 048
  14. ALBENDAZOLE [Concomitant]
     Active Substance: ALBENDAZOLE
     Indication: Disseminated strongyloidiasis
  15. MIDODRINE [Concomitant]
     Active Substance: MIDODRINE
     Indication: Blood pressure decreased
  16. SODIUM CHLORIDE [Concomitant]
     Active Substance: SODIUM CHLORIDE
     Indication: Product used for unknown indication
     Route: 042
  17. Ringer Lactat [Concomitant]
     Route: 042

REACTIONS (3)
  - Ileus [Unknown]
  - Abdominal distension [Unknown]
  - Blood pressure decreased [Unknown]
